FAERS Safety Report 24381079 (Version 1)
Quarter: 2024Q3

REPORT INFORMATION
  Report Type: Spontaneous
  Country: JP (occurrence: JP)
  Receive Date: 20240930
  Receipt Date: 20240930
  Transmission Date: 20241017
  Serious: Yes (Other)
  Sender: MERCK
  Company Number: JP-009507513-2409JPN009686

PATIENT
  Age: 80 Year
  Sex: Female

DRUGS (3)
  1. PEMBROLIZUMAB [Suspect]
     Active Substance: PEMBROLIZUMAB
     Indication: Metastases to pleura
     Dosage: FROM THE 2ND COURSE, Q3W; THEN AS MONOTHERAPY
  2. CARBOPLATIN [Concomitant]
     Active Substance: CARBOPLATIN
     Indication: Metastases to pleura
  3. PACLITAXEL [Concomitant]
     Active Substance: PACLITAXEL
     Indication: Metastases to pleura

REACTIONS (3)
  - Cardiotoxicity [Unknown]
  - Pericardial effusion [Unknown]
  - Off label use [Unknown]
